FAERS Safety Report 12113599 (Version 2)
Quarter: 2016Q1

REPORT INFORMATION
  Report Type: Spontaneous
  Country: FR (occurrence: FR)
  Receive Date: 20160225
  Receipt Date: 20160314
  Transmission Date: 20160526
  Serious: Yes (Hospitalization, Other)
  Sender: FDA-Public Use
  Company Number: FR-EMCURE-000830

PATIENT
  Age: 68 Year
  Sex: Male

DRUGS (9)
  1. ALLOPURINOL. [Suspect]
     Active Substance: ALLOPURINOL
     Indication: PROPHYLAXIS
     Route: 048
     Dates: start: 20160104, end: 20160112
  2. ARACYTINE [Suspect]
     Active Substance: CYTARABINE
     Indication: LYMPHOMA
     Route: 042
     Dates: start: 20160106, end: 20160109
  3. ALKERAN [Suspect]
     Active Substance: MELPHALAN
     Indication: LYMPHOMA
     Dosage: 242 MG IN SINGLE DOSE
     Route: 042
     Dates: start: 20160110, end: 20160110
  4. BICNU [Suspect]
     Active Substance: CARMUSTINE
     Indication: LYMPHOMA
     Dosage: SINGLE DOSE
     Route: 042
     Dates: start: 20160105, end: 20160105
  5. EMEND [Suspect]
     Active Substance: APREPITANT
     Indication: PROPHYLAXIS
     Dosage: STRENGTH: 80 MG
     Route: 048
     Dates: start: 20160104, end: 20160113
  6. ZOPHREN [Suspect]
     Active Substance: ONDANSETRON
     Indication: PROPHYLAXIS
     Dosage: STRENGTH: 8 MG
     Route: 042
     Dates: start: 20160105, end: 20160112
  7. FUROSEMIDE. [Suspect]
     Active Substance: FUROSEMIDE
     Indication: OEDEMA
     Route: 042
     Dates: start: 20160104, end: 20160111
  8. ETOPOSIDE. [Suspect]
     Active Substance: ETOPOSIDE
     Indication: LYMPHOMA
     Route: 042
     Dates: start: 20160106, end: 20160109
  9. HEPARIN SODIUM PANPHARMA [Suspect]
     Active Substance: HEPARIN SODIUM
     Indication: PROPHYLAXIS
     Route: 042
     Dates: start: 20160104, end: 20160111

REACTIONS (10)
  - Thrombocytopenia [Unknown]
  - Dermatitis bullous [Recovered/Resolved]
  - Blister [Unknown]
  - Pyrexia [Unknown]
  - Rash maculo-papular [Recovered/Resolved]
  - Clostridium difficile infection [Recovered/Resolved]
  - Streptococcal infection [Unknown]
  - Dermatitis exfoliative [Recovered/Resolved]
  - Skin exfoliation [Recovered/Resolved]
  - Diarrhoea [Unknown]

NARRATIVE: CASE EVENT DATE: 20160113
